FAERS Safety Report 8137912-1 (Version None)
Quarter: 2012Q1

REPORT INFORMATION
  Report Type: 
  Country: None (occurrence: None)
  Receive Date: 20120215
  Receipt Date: 20120203
  Transmission Date: 20120608
  Serious: Yes (Hospitalization)
  Sender: FDA-Public Use
  Company Number: JP-ELI_LILLY_AND_COMPANY-JP201201007660

PATIENT

DRUGS (4)
  1. ZYPREXA [Suspect]
     Dosage: UNK
     Route: 063
  2. ZYPREXA [Suspect]
     Dosage: UNK
     Route: 063
  3. ZYPREXA [Suspect]
     Dosage: UNK
     Route: 064
     Dates: end: 20120117
  4. ZYPREXA [Suspect]
     Dosage: UNK
     Route: 064
     Dates: end: 20120117

REACTIONS (3)
  - EXPOSURE DURING BREAST FEEDING [None]
  - PREMATURE BABY [None]
  - FOETAL EXPOSURE DURING PREGNANCY [None]
